FAERS Safety Report 25466237 (Version 1)
Quarter: 2025Q2

REPORT INFORMATION
  Report Type: Spontaneous
  Country: US (occurrence: US)
  Receive Date: 20250623
  Receipt Date: 20250623
  Transmission Date: 20250717
  Serious: No
  Sender: RANBAXY
  Company Number: US-MIMS-SUN-2025-USA-53865

PATIENT
  Sex: Female

DRUGS (1)
  1. FLUOCINOLONE [Suspect]
     Active Substance: FLUOCINOLONE
     Indication: Product used for unknown indication
     Route: 061

REACTIONS (1)
  - Product administration error [Unknown]
